FAERS Safety Report 6651187-1 (Version None)
Quarter: 2010Q1

REPORT INFORMATION
  Report Type: 
  Country: None (occurrence: None)
  Receive Date: 20100325
  Receipt Date: 20100222
  Transmission Date: 20100710
  Serious: Yes (Other)
  Sender: FDA-Public Use
  Company Number: US-NOVOPROD-288901

PATIENT
  Sex: Female

DRUGS (3)
  1. GLUCAGEN [Suspect]
     Indication: HYPOGLYCAEMIA
     Dosage: UNK, PRN
     Route: 058
     Dates: start: 20090528
  2. LANTUS [Concomitant]
     Indication: TYPE 1 DIABETES MELLITUS
     Dosage: 12 IU, QD (AM)
     Route: 058
     Dates: start: 20050101
  3. LUMIGAN [Concomitant]
     Indication: EYE DISORDER

REACTIONS (1)
  - DRUG INEFFECTIVE [None]
